FAERS Safety Report 18427314 (Version 2)
Quarter: 2021Q1

REPORT INFORMATION
  Report Type: Spontaneous
  Country: US (occurrence: US)
  Receive Date: 20201026
  Receipt Date: 20210222
  Transmission Date: 20210419
  Serious: Yes (Hospitalization)
  Sender: FDA-Public Use
  Company Number: US-FERRINGPH-2020FE07281

PATIENT
  Sex: Female

DRUGS (1)
  1. STIMATE [Suspect]
     Active Substance: DESMOPRESSIN ACETATE
     Indication: VON WILLEBRAND^S DISEASE
     Dosage: UNK
     Route: 045
     Dates: start: 20191125

REACTIONS (7)
  - Dysuria [Unknown]
  - Swelling face [Unknown]
  - Hyponatraemia [Unknown]
  - Peripheral swelling [Unknown]
  - Out of specification product use [Unknown]
  - Recalled product administered [Unknown]
  - Fluid retention [Unknown]

NARRATIVE: CASE EVENT DATE: 201911
